FAERS Safety Report 12968801 (Version 2)
Quarter: 2017Q1

REPORT INFORMATION
  Report Type: Report from Study
  Country: US (occurrence: US)
  Receive Date: 20161123
  Receipt Date: 20170128
  Transmission Date: 20170428
  Serious: Yes (Other)
  Sender: FDA-Public Use
  Company Number: US-AMGEN-USASL2016163522

PATIENT
  Age: 72 Year
  Sex: Male
  Weight: 84.35 kg

DRUGS (22)
  1. PROTONIX [Concomitant]
     Active Substance: PANTOPRAZOLE SODIUM
     Dosage: 40 MG, QD
     Route: 048
  2. TYLENOL [Concomitant]
     Active Substance: ACETAMINOPHEN
     Indication: PYREXIA
     Dosage: 650 MG (325 MG/TABLET, 2 TABLETS), Q4H AS NEEDED
     Route: 048
  3. TOPROL XL [Concomitant]
     Active Substance: METOPROLOL SUCCINATE
     Dosage: 25 MG, BID
     Route: 048
  4. MYCOSTATIN [Concomitant]
     Active Substance: NYSTATIN
     Dosage: 2000000 UNIT, QID
  5. DECADRON [Concomitant]
     Active Substance: DEXAMETHASONE
     Dosage: 4 MG, UNK
  6. PRINIVIL [Concomitant]
     Active Substance: LISINOPRIL
     Dosage: 5 MG, UNK
  7. LOPRESSOR [Concomitant]
     Active Substance: METOPROLOL TARTRATE
     Dosage: 25 MG, UNK
  8. AQUAPHOR [Concomitant]
     Active Substance: PETROLATUM
     Indication: RASH
     Dosage: UNK UNK, AS NECESSARY
  9. DELTASONE [Concomitant]
     Active Substance: PREDNISONE
     Dosage: UNK DF, QD
  10. TYLENOL [Concomitant]
     Active Substance: ACETAMINOPHEN
     Indication: PAIN
  11. ALUMINIUM W/MAGNESIUM HYDROXIDE/SIMETICONE [Concomitant]
     Indication: DYSPEPSIA
     Dosage: 30 ML, Q6H AS NEEDED
     Route: 048
  12. VANCOCIN [Concomitant]
     Active Substance: VANCOMYCIN HYDROCHLORIDE
     Dosage: 5000 MG, UNK
  13. VALIUM [Concomitant]
     Active Substance: DIAZEPAM
     Indication: ANXIETY
     Dosage: 5 MG, AS NECESSARY
     Route: 048
  14. ACETAMINOPHEN W/HYDROCODONE [Concomitant]
     Active Substance: ACETAMINOPHEN\HYDROCODONE
     Dosage: 5 MG, Q6H AS NEEDED
     Route: 048
  15. ZESTRIL [Concomitant]
     Active Substance: LISINOPRIL
     Dosage: 5 MG, UNK
  16. PRALUENT [Concomitant]
     Active Substance: ALIROCUMAB
     Dosage: 75 MG/ML, UNK
  17. REPATHA [Suspect]
     Active Substance: EVOLOCUMAB
     Indication: TYPE IIA HYPERLIPIDAEMIA
     Dosage: 140 MG (1.07 ML), Q2WK
     Route: 065
     Dates: start: 20160210
  18. COLAC [Concomitant]
     Indication: CONSTIPATION
     Dosage: 100 MG, AS NECESSARY
     Route: 048
  19. DESYREL [Concomitant]
     Active Substance: TRAZODONE HYDROCHLORIDE
     Dosage: 50 MG, QHS
     Route: 048
  20. ELIQUIS [Concomitant]
     Active Substance: APIXABAN
     Dosage: 5 MG, BID
     Route: 048
  21. ZYRTEC [Concomitant]
     Active Substance: CETIRIZINE HYDROCHLORIDE
     Indication: HYPERSENSITIVITY
     Dosage: 10 MG, QHS AS NEEDED
     Route: 048
  22. PROZAC [Concomitant]
     Active Substance: FLUOXETINE HYDROCHLORIDE
     Dosage: 20 MG, AS NECESSARY
     Route: 048

REACTIONS (1)
  - Meningioma [Unknown]

NARRATIVE: CASE EVENT DATE: 201608
